FAERS Safety Report 8475770-6 (Version None)
Quarter: 2012Q2

REPORT INFORMATION
  Report Type: 
  Country: None (occurrence: None)
  Receive Date: 20120628
  Receipt Date: 20120614
  Transmission Date: 20120825
  Serious: Yes (Other)
  Sender: FDA-Public Use
  Company Number: DE-ARROW GEN-2012-10825

PATIENT
  Sex: Male

DRUGS (2)
  1. OMEPRAZOLE [Suspect]
     Indication: PRODUCT USED FOR UNKNOWN INDICATION
     Dosage: UNK
     Route: 048
  2. BICALUTAMIDE [Suspect]
     Indication: PROSTATE CANCER METASTATIC
     Dosage: 150 MG, UNKNOWN
     Route: 048
     Dates: start: 20120405

REACTIONS (2)
  - DRUG INTERACTION [None]
  - BLOOD CHROMOGRANIN A INCREASED [None]
